FAERS Safety Report 8957512 (Version 1)
Quarter: 2012Q4

REPORT INFORMATION
  Report Type: Spontaneous
  Country: AU (occurrence: None)
  Receive Date: 20121130
  Receipt Date: 20121130
  Transmission Date: 20130627
  Serious: Yes (Other)
  Sender: FDA-Public Use
  Company Number: 2012P1065486

PATIENT

DRUGS (2)
  1. PROPRANOLOL [Suspect]
     Route: 048
  2. PROPRANOLOL [Suspect]
     Route: 048

REACTIONS (2)
  - Motor dysfunction [None]
  - Gait disturbance [None]
